FAERS Safety Report 9473736 (Version 1)
Quarter: 2013Q3

REPORT INFORMATION
  Report Type: Spontaneous
  Country: US (occurrence: US)
  Receive Date: 20130823
  Receipt Date: 20130823
  Transmission Date: 20140515
  Serious: No
  Sender: FDA-Public Use
  Company Number: US-BRISTOL-MYERS SQUIBB COMPANY-16945123

PATIENT
  Age: 66 Year
  Sex: Male
  Weight: 90.72 kg

DRUGS (7)
  1. SPRYCEL (CML) TABS 100 MG [Suspect]
     Indication: CHRONIC MYELOID LEUKAEMIA
     Route: 048
     Dates: start: 20120101
  2. COQ10 [Concomitant]
  3. CRESTOR [Concomitant]
  4. JANUMET [Concomitant]
  5. ASPIRIN [Concomitant]
  6. METOPROLOL [Concomitant]
  7. SAW PALMETTO [Concomitant]
     Dosage: CAPS

REACTIONS (1)
  - Skin disorder [Not Recovered/Not Resolved]
